FAERS Safety Report 10576441 (Version 1)
Quarter: 2014Q4

REPORT INFORMATION
  Report Type: Spontaneous
  Country: US (occurrence: None)
  Receive Date: 20141110
  Receipt Date: 20141110
  Transmission Date: 20150529
  Serious: Yes (Disabling)
  Sender: FDA-Public Use
  Company Number: None

PATIENT
  Age: 35 Year
  Sex: Female
  Weight: 61.69 kg

DRUGS (1)
  1. MIRENA [Suspect]
     Active Substance: LEVONORGESTREL
     Dates: start: 20141027, end: 20141106

REACTIONS (7)
  - Depression [None]
  - Micturition urgency [None]
  - Bladder disorder [None]
  - Urinary tract infection [None]
  - Feeling abnormal [None]
  - Cystitis [None]
  - Mood swings [None]

NARRATIVE: CASE EVENT DATE: 20141027
